FAERS Safety Report 10207159 (Version 10)
Quarter: 2015Q1

REPORT INFORMATION
  Report Type: Spontaneous
  Country: US (occurrence: US)
  Receive Date: 20140530
  Receipt Date: 20150119
  Transmission Date: 20150720
  Serious: Yes (Hospitalization, Disabling, Other)
  Sender: FDA-Public Use
  Company Number: US-009507513-1205USA04982

PATIENT
  Sex: Female
  Weight: 61.68 kg

DRUGS (2)
  1. FOSAMAX [Suspect]
     Active Substance: ALENDRONATE SODIUM
     Indication: OSTEOPOROSIS
     Dosage: UNK
     Route: 048
     Dates: start: 20010205, end: 201108
  2. FOSAMAX [Suspect]
     Active Substance: ALENDRONATE SODIUM
     Indication: OSTEOPOROSIS
     Dosage: 70 MG, UNK
     Route: 048
     Dates: start: 20010205, end: 2006

REACTIONS (71)
  - Pneumonia [Unknown]
  - Urge incontinence [Unknown]
  - Urinary tract infection [Unknown]
  - Chest discomfort [Not Recovered/Not Resolved]
  - Spinal compression fracture [Unknown]
  - Fracture nonunion [Unknown]
  - Acute kidney injury [Unknown]
  - Peripheral swelling [Unknown]
  - Mitral valve prolapse [Unknown]
  - Dysphonia [Unknown]
  - Dysuria [Unknown]
  - Essential hypertension [Unknown]
  - Palpitations [Not Recovered/Not Resolved]
  - Pyrexia [Unknown]
  - Headache [Unknown]
  - Intramedullary rod insertion [Unknown]
  - Chronic obstructive pulmonary disease [Not Recovered/Not Resolved]
  - Acute sinusitis [Unknown]
  - Hyperlipidaemia [Unknown]
  - Insomnia [Unknown]
  - Carotid bruit [Unknown]
  - Chest pain [Unknown]
  - Bronchitis [Not Recovered/Not Resolved]
  - Emphysema [Unknown]
  - Mental status changes [Unknown]
  - Feeling jittery [Unknown]
  - Peripheral venous disease [Unknown]
  - Arthralgia [Unknown]
  - Constipation [Unknown]
  - Intramedullary rod insertion [Unknown]
  - Femur fracture [Recovered/Resolved]
  - Tenderness [Unknown]
  - Carotid artery stenosis [Unknown]
  - Tremor [Unknown]
  - Osteopenia [Unknown]
  - Increased tendency to bruise [Not Recovered/Not Resolved]
  - Foot fracture [Unknown]
  - Femur fracture [Unknown]
  - Catheterisation cardiac [Unknown]
  - Femur fracture [Not Recovered/Not Resolved]
  - Anaemia [Unknown]
  - Skin candida [Unknown]
  - Hypertonic bladder [Unknown]
  - Muscle strain [Unknown]
  - Weight decreased [Not Recovered/Not Resolved]
  - Kyphosis [Unknown]
  - Fall [Unknown]
  - Back pain [Unknown]
  - Pain in extremity [Unknown]
  - Anxiety [Unknown]
  - Deep vein thrombosis [Unknown]
  - Osteoarthritis [Unknown]
  - Bartholin^s cyst [Unknown]
  - Adverse event [Unknown]
  - Pulmonary hypertension [Unknown]
  - Stress urinary incontinence [Unknown]
  - Vitamin D deficiency [Unknown]
  - Hypertensive heart disease [Unknown]
  - Drug intolerance [Unknown]
  - Arthralgia [Unknown]
  - Gastrooesophageal reflux disease [Unknown]
  - Renal failure [Unknown]
  - Depression [Unknown]
  - Upper airway resistance syndrome [Unknown]
  - Limb injury [Unknown]
  - Rheumatoid arthritis [Unknown]
  - Asthma [Not Recovered/Not Resolved]
  - Bronchitis [Unknown]
  - Haemorrhoids [Unknown]
  - Hypoxia [Unknown]
  - Oral candidiasis [Unknown]

NARRATIVE: CASE EVENT DATE: 20030110
